FAERS Safety Report 5832931-X (Version None)
Quarter: 2008Q3

REPORT INFORMATION
  Report Type: 
  Country: None (occurrence: None)
  Receive Date: 20080804
  Receipt Date: 20080730
  Transmission Date: 20090109
  Serious: No
  Sender: FDA-Public Use
  Company Number: US-BOEHRINGER INGELHEIM GMBH, GERMANY-2008-BP-12023BP

PATIENT
  Sex: Female

DRUGS (2)
  1. ZANTAC 150 [Suspect]
     Indication: STOMACH DISCOMFORT
     Route: 048
     Dates: start: 20080718, end: 20080725
  2. ATENOLOL [Concomitant]
     Indication: TACHYCARDIA
     Route: 048
     Dates: start: 19980101

REACTIONS (2)
  - DYSPEPSIA [None]
  - THROAT IRRITATION [None]
